FAERS Safety Report 11845604 (Version 2)
Quarter: 2015Q4

REPORT INFORMATION
  Report Type: Spontaneous
  Country: US (occurrence: US)
  Receive Date: 20151217
  Receipt Date: 20151231
  Transmission Date: 20160305
  Serious: No
  Sender: FDA-Public Use
  Company Number: US-PFIZER INC-2015450948

PATIENT
  Age: 54 Year
  Sex: Male
  Weight: 93 kg

DRUGS (2)
  1. METRONIDAZOLE. [Suspect]
     Active Substance: METRONIDAZOLE
     Indication: ABDOMINAL ABSCESS
     Dosage: UNK
  2. CIPRO /00697201/ [Suspect]
     Active Substance: CIPROFLOXACIN
     Indication: ABDOMINAL ABSCESS
     Dosage: UNK

REACTIONS (2)
  - Abdominal pain [Unknown]
  - Asthenia [Unknown]
